FAERS Safety Report 20137505 (Version 2)
Quarter: 2022Q1

REPORT INFORMATION
  Report Type: Spontaneous
  Country: ZA (occurrence: ZA)
  Receive Date: 20211201
  Receipt Date: 20220104
  Transmission Date: 20220423
  Serious: Yes (Death)
  Sender: FDA-Public Use
  Company Number: ZA-ABBVIE-21K-143-4182234-00

PATIENT
  Age: 70 Year
  Sex: Male

DRUGS (1)
  1. VENCLEXTA [Suspect]
     Active Substance: VENETOCLAX
     Indication: Acute myeloid leukaemia
     Route: 048
     Dates: start: 20210830

REACTIONS (1)
  - Death [Fatal]

NARRATIVE: CASE EVENT DATE: 20211129
